FAERS Safety Report 10553053 (Version 3)
Quarter: 2014Q4

REPORT INFORMATION
  Report Type: Spontaneous
  Country: JP (occurrence: JP)
  Receive Date: 20141029
  Receipt Date: 20141209
  Transmission Date: 20150529
  Serious: Yes (Death)
  Sender: FDA-Public Use
  Company Number: PHHY2014JP141084

PATIENT
  Age: 78 Year
  Sex: Female

DRUGS (21)
  1. NEODOPASTON [Concomitant]
     Active Substance: CARBIDOPA\LEVODOPA
     Dosage: 750 MG, UNK
     Route: 048
  2. MIRAPEX [Concomitant]
     Active Substance: PRAMIPEXOLE DIHYDROCHLORIDE
     Dosage: 0.750 UNK, UNK
     Route: 048
  3. MEMARY [Concomitant]
     Active Substance: MEMANTINE HYDROCHLORIDE
     Indication: DEMENTIA ALZHEIMER^S TYPE
     Dosage: 5 MG, UNK
     Route: 048
     Dates: start: 20130320
  4. FP-OD [Concomitant]
     Active Substance: SELEGILINE HYDROCHLORIDE
     Indication: PARKINSON^S DISEASE
     Dosage: 2.5 MG, UNK
     Route: 048
  5. FP-OD [Concomitant]
     Active Substance: SELEGILINE HYDROCHLORIDE
     Dosage: 5 MG, UNK
     Route: 048
  6. NEODOPASTON [Concomitant]
     Active Substance: CARBIDOPA\LEVODOPA
     Dosage: 375 MG, UNK
     Route: 048
  7. REMINYL [Concomitant]
     Active Substance: GALANTAMINE
     Indication: DEMENTIA ALZHEIMER^S TYPE
     Dosage: 8 MG, UNK
     Route: 048
     Dates: start: 20130320
  8. REMINYL [Concomitant]
     Active Substance: GALANTAMINE
     Dosage: 24 MG, UNK
     Route: 048
  9. MEMARY [Concomitant]
     Active Substance: MEMANTINE HYDROCHLORIDE
     Dosage: 5 MG, UNK
     Route: 048
  10. TRERIEF [Concomitant]
     Active Substance: ZONISAMIDE
     Indication: PARKINSON^S DISEASE
     Dosage: 25 MG, UNK
     Route: 048
     Dates: start: 20131030
  11. TRERIEF [Concomitant]
     Active Substance: ZONISAMIDE
     Dosage: 250 MG, UNK
     Route: 048
  12. MIRAPEX [Concomitant]
     Active Substance: PRAMIPEXOLE DIHYDROCHLORIDE
     Dosage: 1 DF, UNK, (0.375 MG )
     Route: 048
     Dates: start: 20130308
  13. MEMARY [Concomitant]
     Active Substance: MEMANTINE HYDROCHLORIDE
     Dosage: 20 MG, UNK
     Route: 048
  14. COMTAN [Suspect]
     Active Substance: ENTACAPONE
     Indication: PARKINSON^S DISEASE
     Dosage: 3 DF, QD, 3 TABLETS IN 3 DIVIDED DOSES AT THE SAME TIME
     Route: 048
     Dates: start: 20130625
  15. MIRAPEX [Concomitant]
     Active Substance: PRAMIPEXOLE DIHYDROCHLORIDE
     Indication: PARKINSON^S DISEASE
     Dosage: 1.5 MG, UNK
     Route: 048
  16. REMINYL [Concomitant]
     Active Substance: GALANTAMINE
     Dosage: 16 MG, UNK
     Route: 048
  17. MEMARY [Concomitant]
     Active Substance: MEMANTINE HYDROCHLORIDE
     Dosage: 10 MG, UNK
     Route: 048
  18. NEODOPASTON [Concomitant]
     Active Substance: CARBIDOPA\LEVODOPA
     Indication: PARKINSON^S DISEASE
     Dosage: 3 DF, UNK, 300 MG, (100 MG WAS PRESCRIBED AT 3 TABLETS)
     Route: 048
     Dates: start: 20130302
  19. NEODOPASTON [Concomitant]
     Active Substance: CARBIDOPA\LEVODOPA
     Dosage: 375 MG, UNK
     Route: 048
  20. MICAMLO [Concomitant]
     Active Substance: AMLODIPINE BESYLATE\TELMISARTAN
     Indication: HYPERTENSION
     Dosage: 1 DF, UNK
     Route: 048
     Dates: start: 20130329, end: 20130624
  21. MICARDIS [Concomitant]
     Active Substance: TELMISARTAN
     Indication: HYPERTENSION
     Dosage: 20 MG, UNK
     Route: 048
     Dates: start: 20130625

REACTIONS (11)
  - Hallucination [Unknown]
  - Somnolence [Recovered/Resolved]
  - Apathy [Unknown]
  - Psychiatric symptom [Unknown]
  - Tremor [Recovered/Resolved]
  - Movement disorder [Unknown]
  - Initial insomnia [Recovered/Resolved]
  - Delusion [Unknown]
  - Clumsiness [Unknown]
  - Dyskinesia [Recovered/Resolved]
  - Completed suicide [Fatal]

NARRATIVE: CASE EVENT DATE: 201310
